FAERS Safety Report 8615053-4 (Version None)
Quarter: 2012Q3

REPORT INFORMATION
  Report Type: 
  Country: None (occurrence: None)
  Receive Date: 20120823
  Receipt Date: 20120809
  Transmission Date: 20120928
  Serious: Yes (Other)
  Sender: FDA-Public Use
  Company Number: DE-RANBAXY-2012RR-58086

PATIENT
  Age: 77 Year
  Sex: Male

DRUGS (10)
  1. TORSEMIDE [Suspect]
     Dosage: 2.5 MG, QD
     Route: 065
  2. RISPERIDONE [Suspect]
     Dosage: 1.5 MG, BID, 0.5-0-1
     Route: 065
     Dates: start: 20110801
  3. ACETYLSALICYLIC ACID SRT [Suspect]
     Indication: PRODUCT USED FOR UNKNOWN INDICATION
     Dosage: 100 MG, QD
     Route: 065
  4. MEMANTINE HCL [Concomitant]
     Indication: DEMENTIA
     Dosage: 20 MG, QD
     Route: 065
  5. DIGITOXIN TAB [Suspect]
     Indication: PRODUCT USED FOR UNKNOWN INDICATION
     Dosage: 0.07 MG, QD
     Route: 065
  6. TORSEMIDE [Suspect]
     Indication: PRODUCT USED FOR UNKNOWN INDICATION
     Dosage: 5 MG, QD
     Route: 065
  7. METOPROLOL TARTRATE [Concomitant]
     Indication: PRODUCT USED FOR UNKNOWN INDICATION
     Dosage: 47.5 MG, QD
     Route: 065
  8. METOPROLOL TARTRATE [Concomitant]
     Dosage: 23.75 MG, QD
     Route: 065
  9. DORZOLAMIDE [Suspect]
     Indication: GLAUCOMA
     Dosage: 20 MG/ML, BID
     Route: 031
  10. RISPERIDONE [Suspect]
     Indication: PRODUCT USED FOR UNKNOWN INDICATION
     Dosage: 0.25 MG, TID
     Route: 065
     Dates: end: 20110701

REACTIONS (3)
  - IIIRD NERVE PARESIS [None]
  - PLEUROTHOTONUS [None]
  - MUSCULOSKELETAL STIFFNESS [None]
